FAERS Safety Report 9581317 (Version 8)
Quarter: 2014Q4

REPORT INFORMATION
  Report Type: Spontaneous
  Country: JP (occurrence: JP)
  Receive Date: 20131002
  Receipt Date: 20141105
  Transmission Date: 20150529
  Serious: Yes (Hospitalization, Other)
  Sender: FDA-Public Use
  Company Number: JP-GILEAD-2013-0080931

PATIENT
  Age: 46 Year
  Sex: Male
  Weight: 59 kg

DRUGS (13)
  1. HEPSERA [Suspect]
     Active Substance: ADEFOVIR DIPIVOXIL
     Dosage: UNK
     Route: 065
     Dates: start: 1998
  2. HEPSERA [Suspect]
     Active Substance: ADEFOVIR DIPIVOXIL
     Dosage: 10 MG, QD
     Route: 048
     Dates: start: 2003, end: 201302
  3. ZEFIX [Suspect]
     Active Substance: LAMIVUDINE
     Indication: CHRONIC HEPATITIS B
     Dosage: 100 MG, QD
     Route: 048
     Dates: start: 2002
  4. URSO [Concomitant]
     Active Substance: URSODIOL
     Indication: CHOLELITHIASIS
     Dosage: 100 MG, TID
     Route: 048
  5. HEPSERA [Suspect]
     Active Substance: ADEFOVIR DIPIVOXIL
     Indication: CHRONIC HEPATITIS B
     Dosage: 10 MG, Q3DAYS
     Route: 048
     Dates: start: 201302
  6. LASIX [Concomitant]
     Active Substance: FUROSEMIDE
     Indication: ASCITES
     Dosage: 20 MG, QD
     Route: 048
  7. PHOSRIBBON [Concomitant]
     Dosage: 1200 MG, QD
     Route: 065
  8. FUROSEMIDE. [Concomitant]
     Active Substance: FUROSEMIDE
     Indication: ASCITES
     Dosage: 20MG PER DAY
     Route: 048
  9. LIVACT                             /00847901/ [Concomitant]
     Indication: HYPOALBUMINAEMIA
     Dosage: 1 DF, TID
     Route: 048
  10. LIVACT                             /00847901/ [Concomitant]
     Indication: HEPATIC CIRRHOSIS
  11. GAMOFA [Concomitant]
     Active Substance: FAMOTIDINE
     Indication: GASTRITIS
     Dosage: 10 MG, QD
     Route: 048
  12. GAMOFA [Concomitant]
     Active Substance: FAMOTIDINE
     Route: 048
  13. FUROSEMIDE. [Concomitant]
     Active Substance: FUROSEMIDE
     Route: 048

REACTIONS (23)
  - Multiple fractures [Recovering/Resolving]
  - Fractured sacrum [Unknown]
  - Glucose urine present [Unknown]
  - Hepatocellular carcinoma [Recovered/Resolved]
  - Bone marrow failure [Unknown]
  - Hypophosphataemia [Recovering/Resolving]
  - Chest pain [Unknown]
  - Bone pain [Unknown]
  - Fanconi syndrome acquired [Recovering/Resolving]
  - Tibia fracture [Unknown]
  - Musculoskeletal pain [Unknown]
  - Gait disturbance [Unknown]
  - Pain [Recovering/Resolving]
  - Hypokalaemia [Recovering/Resolving]
  - Urine phosphorus decreased [Unknown]
  - Arthralgia [Unknown]
  - Back pain [Unknown]
  - Pelvic fracture [Unknown]
  - Vitamin D decreased [Unknown]
  - Renal impairment [Recovering/Resolving]
  - Blood alkaline phosphatase increased [Unknown]
  - Proteinuria [Unknown]
  - Osteomalacia [Recovering/Resolving]

NARRATIVE: CASE EVENT DATE: 200302
